FAERS Safety Report 5900486-7 (Version None)
Quarter: 2008Q3

REPORT INFORMATION
  Report Type: 
  Country: None (occurrence: None)
  Receive Date: 20080926
  Receipt Date: 20080922
  Transmission Date: 20090109
  Serious: Yes (Death, Hospitalization, Other)
  Sender: FDA-Public Use
  Company Number: NL-ROXANE LABORATORIES, INC.-2008-RO-00048RO

PATIENT
  Age: 85 Year

DRUGS (5)
  1. CITALOPRAM HYDROBROMIDE [Suspect]
  2. BENZODIAZEPINE [Suspect]
  3. PARACETAMOL [Suspect]
  4. OTHER DRUGS [Concomitant]
  5. ACETYLCYSTEINE [Concomitant]
     Indication: DRUG TOXICITY
     Route: 042

REACTIONS (4)
  - DEPRESSED LEVEL OF CONSCIOUSNESS [None]
  - DRUG TOXICITY [None]
  - RESPIRATORY ARREST [None]
  - TACHYCARDIA [None]
